FAERS Safety Report 18746752 (Version 1)
Quarter: 2021Q1

REPORT INFORMATION
  Report Type: Spontaneous
  Country: US (occurrence: US)
  Receive Date: 20210115
  Receipt Date: 20210115
  Transmission Date: 20210419
  Serious: No
  Sender: FDA-Public Use
  Company Number: US-PFIZER INC-2021025957

PATIENT
  Age: 78 Year
  Sex: Female

DRUGS (1)
  1. IBRANCE [Suspect]
     Active Substance: PALBOCICLIB
     Indication: BREAST CANCER FEMALE
     Dosage: 75 MG, CYCLIC (TAKE 1 TABLET ONCE DAILY ON D1?21 FOLLOWED BY 7 DAYS REST, REPEATED Q 28 DAYS)
     Route: 048
     Dates: start: 201905

REACTIONS (4)
  - Fatigue [Unknown]
  - Alopecia [Unknown]
  - Product dose omission issue [Unknown]
  - Nausea [Unknown]
